FAERS Safety Report 8152092 (Version 2)
Quarter: 2013Q2

REPORT INFORMATION
  Report Type: Spontaneous
  Country: US (occurrence: US)
  Receive Date: 20110922
  Receipt Date: 20130620
  Transmission Date: 20140414
  Serious: Yes (Other)
  Sender: FDA-Public Use
  Company Number: US-ASTRAZENECA-2011SE12680

PATIENT
  Age: 50 Year
  Sex: Male
  Weight: 102.1 kg

DRUGS (20)
  1. SEROQUEL [Suspect]
     Dosage: ONE TABLET TO BE TAKEN IN MORNING AND ONE TABLET IN EVENING
     Route: 048
     Dates: start: 20030807
  2. GEODON [Concomitant]
  3. LISINOPRIL [Concomitant]
     Dosage: BID
  4. LISINOPRIL [Concomitant]
     Dosage: BID
  5. EFFEXOR XR [Concomitant]
     Dates: start: 20041217
  6. TRAZODONE [Concomitant]
     Dates: start: 20041217
  7. TRAZODONE [Concomitant]
     Dates: start: 20130207
  8. ZANTAC [Concomitant]
  9. KLONOPIN [Concomitant]
  10. ABILIFY [Concomitant]
     Dates: start: 20030719
  11. RISPERIDONE [Concomitant]
     Indication: SCHIZOPHRENIA
     Route: 048
     Dates: start: 20121128
  12. RISPERIDONE [Concomitant]
     Indication: SCHIZOPHRENIA
     Route: 048
     Dates: start: 20110910
  13. XANAX [Concomitant]
     Route: 048
     Dates: start: 20120907
  14. ALPRAZOLAM [Concomitant]
     Indication: ANXIETY
     Dates: start: 20110516
  15. GABAPENTIN [Concomitant]
     Indication: ANXIETY
     Dates: start: 20120529
  16. PRILOSEC [Concomitant]
  17. SELMA [Concomitant]
  18. ZOLOFT [Concomitant]
  19. METFORMIN [Concomitant]
  20. ATENOLOL [Concomitant]
     Route: 048

REACTIONS (3)
  - Pancreatitis [Unknown]
  - Diabetic coma [Unknown]
  - Type 2 diabetes mellitus [Unknown]
